FAERS Safety Report 5373650-6 (Version None)
Quarter: 2007Q2

REPORT INFORMATION
  Report Type: 
  Country: None (occurrence: None)
  Receive Date: 20070627
  Receipt Date: 20060508
  Transmission Date: 20071010
  Serious: Yes (Other)
  Sender: FDA-Public Use
  Company Number: 445593

PATIENT
  Age: 72 Year
  Sex: Male
  Weight: 96.4 kg

DRUGS (2)
  1. XELODA [Suspect]
     Indication: BLADDER CANCER
     Dosage: 500 MG/M2 2 PER DAY ORAL
     Route: 048
     Dates: start: 20060410, end: 20060417
  2. GEMCITABINE [Suspect]
     Indication: BLADDER CANCER
     Dosage: 600 MG/M2 2 PER 3 WEEK INTRAVENOUS
     Route: 042
     Dates: start: 20060410, end: 20060424

REACTIONS (1)
  - NEUTROPENIA [None]
